FAERS Safety Report 11868027 (Version 2)
Quarter: 2015Q4

REPORT INFORMATION
  Report Type: Spontaneous
  Country: PL (occurrence: PL)
  Receive Date: 20151224
  Receipt Date: 20151229
  Transmission Date: 20160305
  Serious: Yes (Life-Threatening)
  Sender: FDA-Public Use
  Company Number: PHHY2015PL165133

PATIENT
  Sex: Male
  Weight: 7.3 kg

DRUGS (4)
  1. AMOKSIKLAV [Suspect]
     Active Substance: AMOXICILLIN\CLAVULANATE POTASSIUM
     Indication: BRONCHITIS
     Route: 042
     Dates: start: 20151204, end: 20151206
  2. ZINNAT [Concomitant]
     Active Substance: CEFUROXIME AXETIL
     Indication: BRONCHITIS
     Route: 065
     Dates: start: 20151207, end: 20151213
  3. ZINNAT [Concomitant]
     Active Substance: CEFUROXIME AXETIL
     Indication: PNEUMONIA
  4. AMOKSIKLAV [Suspect]
     Active Substance: AMOXICILLIN\CLAVULANATE POTASSIUM
     Indication: PNEUMONIA

REACTIONS (7)
  - Oedema genital [Recovered/Resolved]
  - Lip oedema [Recovered/Resolved]
  - Eye oedema [Recovered/Resolved]
  - Oedema [Recovered/Resolved]
  - Loss of consciousness [Recovered/Resolved]
  - Loss of consciousness [Unknown]
  - Erythema [Recovered/Resolved]

NARRATIVE: CASE EVENT DATE: 20151206
